FAERS Safety Report 5219474-1 (Version None)
Quarter: 2006Q4

REPORT INFORMATION
  Report Type: 
  Country: None (occurrence: None)
  Receive Date: 20061201
  Receipt Date: 20060721
  Transmission Date: 20070319
  Serious: No
  Sender: FDA-Public Use
  Company Number: 2006PV017996

PATIENT
  Age: 68 Year
  Sex: Female
  Weight: 122.4712 kg

DRUGS (5)
  1. BYETTA [Suspect]
     Indication: DIABETES MELLITUS NON-INSULIN-DEPENDENT
     Dosage: SEE IMAGE
     Route: 058
     Dates: start: 20060601, end: 20060719
  2. BYETTA [Suspect]
     Indication: DIABETES MELLITUS NON-INSULIN-DEPENDENT
     Dosage: SEE IMAGE
     Route: 058
     Dates: start: 20060720
  3. GLUCOPHAGE [Concomitant]
  4. AMARYL [Concomitant]
  5. PRILOSEC [Concomitant]

REACTIONS (2)
  - DIARRHOEA [None]
  - NAUSEA [None]
